FAERS Safety Report 13534386 (Version 2)
Quarter: 2017Q2

REPORT INFORMATION
  Report Type: Spontaneous
  Country: IT (occurrence: IT)
  Receive Date: 20170510
  Receipt Date: 20170517
  Transmission Date: 20170830
  Serious: Yes (Other)
  Sender: FDA-Public Use
  Company Number: IT-MERCK KGAA-2020569

PATIENT
  Age: 48 Year
  Sex: Female

DRUGS (2)
  1. NOVOTHYROX [Suspect]
     Active Substance: LEVOTHYROXINE SODIUM
     Indication: HORMONE REPLACEMENT THERAPY
     Route: 048
     Dates: start: 2010
  2. FEDRA(FEMODENE) [Suspect]
     Active Substance: ETHINYL ESTRADIOL\GESTODENE
     Route: 048
     Dates: start: 20170324

REACTIONS (2)
  - Pregnancy [Recovered/Resolved]
  - Therapy non-responder [Unknown]

NARRATIVE: CASE EVENT DATE: 20170404
